FAERS Safety Report 12982050 (Version 1)
Quarter: 2016Q4

REPORT INFORMATION
  Report Type: Spontaneous
  Country: US (occurrence: US)
  Receive Date: 20161129
  Receipt Date: 20161129
  Transmission Date: 20170207
  Serious: Yes (Hospitalization, Other)
  Sender: FDA-Public Use
  Company Number: US-ASTELLAS-2016US046171

PATIENT
  Age: 61 Year
  Sex: Male

DRUGS (1)
  1. XTANDI [Suspect]
     Active Substance: ENZALUTAMIDE
     Indication: PRODUCT USED FOR UNKNOWN INDICATION
     Route: 048
     Dates: start: 20160211, end: 20161122

REACTIONS (3)
  - Underdose [Unknown]
  - Haemoglobin decreased [Unknown]
  - Dialysis [Unknown]

NARRATIVE: CASE EVENT DATE: 20161001
